FAERS Safety Report 11650829 (Version 1)
Quarter: 2015Q4

REPORT INFORMATION
  Report Type: Spontaneous
  Country: US (occurrence: US)
  Receive Date: 20151021
  Receipt Date: 20151021
  Transmission Date: 20160304
  Serious: No
  Sender: FDA-Public Use
  Company Number: US-ABBVIE-13P-163-1178301-00

PATIENT
  Sex: Female

DRUGS (3)
  1. IVF [Concomitant]
     Indication: PRODUCT USED FOR UNKNOWN INDICATION
  2. LUPRON [Suspect]
     Active Substance: LEUPROLIDE ACETATE
     Indication: PRODUCT USED FOR UNKNOWN INDICATION
     Dates: start: 20070209
  3. AF [Suspect]
     Active Substance: UNSPECIFIED INGREDIENT
     Indication: PRODUCT USED FOR UNKNOWN INDICATION
     Dates: start: 20070213

REACTIONS (6)
  - Depressed mood [Unknown]
  - Insomnia [Unknown]
  - Memory impairment [Unknown]
  - Depression [Unknown]
  - Hot flush [Unknown]
  - Abdominal distension [Unknown]
